FAERS Safety Report 7513361-1 (Version None)
Quarter: 2011Q2

REPORT INFORMATION
  Report Type: 
  Country: None (occurrence: None)
  Receive Date: 20110525
  Receipt Date: 20110525
  Transmission Date: 20111010
  Serious: Yes (Other)
  Sender: FDA-Public Use
  Company Number: None

PATIENT
  Age: 45 Year
  Sex: Female

DRUGS (2)
  1. ENBREL [Suspect]
     Indication: PSORIASIS
     Dosage: 50MG TWICE WEEKLY SUB Q
     Route: 058
     Dates: start: 20110316
  2. ENBREL [Suspect]
     Indication: PSORIASIS
     Dosage: 50MG TWICE WEEKLY SUB Q
     Route: 058
     Dates: start: 20110330

REACTIONS (1)
  - CELLULITIS [None]
